FAERS Safety Report 20538704 (Version 1)
Quarter: 2022Q1

REPORT INFORMATION
  Report Type: Spontaneous
  Country: CO (occurrence: CO)
  Receive Date: 20220302
  Receipt Date: 20220302
  Transmission Date: 20220423
  Serious: Yes (Hospitalization)
  Sender: FDA-Public Use
  Company Number: CO-JNJFOC-20210854068

PATIENT
  Sex: Female

DRUGS (2)
  1. RISPERDAL [Suspect]
     Active Substance: RISPERIDONE
     Indication: Schizophrenia
     Route: 048
     Dates: start: 201910
  2. OLANZAPINE [Concomitant]
     Active Substance: OLANZAPINE

REACTIONS (7)
  - Fat tissue increased [Recovering/Resolving]
  - Amenorrhoea [Recovering/Resolving]
  - Swelling [Recovering/Resolving]
  - Anxiety [Recovering/Resolving]
  - Weight increased [Recovering/Resolving]
  - Social avoidant behaviour [Unknown]
  - Treatment noncompliance [Unknown]

NARRATIVE: CASE EVENT DATE: 20191001
